FAERS Safety Report 17423147 (Version 1)
Quarter: 2020Q1

REPORT INFORMATION
  Report Type: Other
  Country: FR (occurrence: FR)
  Receive Date: 20200216
  Receipt Date: 20200216
  Transmission Date: 20200409
  Serious: Yes (Hospitalization)
  Sender: FDA-Public Use
  Company Number: FR-CELLTRION INC.-2020FR018787

PATIENT

DRUGS (3)
  1. HERZUMA [Suspect]
     Active Substance: TRASTUZUMAB-PKRB
     Indication: HER-2 POSITIVE GASTRIC CANCER
     Dosage: 640 MG, 1 CYCLE
     Route: 042
     Dates: start: 20191126, end: 20191126
  2. FLUOROURACILE ACCORD [Suspect]
     Active Substance: FLUOROURACIL
     Indication: HER-2 POSITIVE GASTRIC CANCER
     Dosage: 5146 MG, 1 CYCLE (SUR 120H)
     Route: 042
     Dates: start: 20191126, end: 20191130
  3. CISPLATINE MYLAN [Suspect]
     Active Substance: CISPLATIN
     Indication: HER-2 POSITIVE GASTRIC CANCER
     Dosage: 154 MG, 1 CYCLE
     Route: 042
     Dates: start: 20191126, end: 20191126

REACTIONS (4)
  - Dihydropyrimidine dehydrogenase deficiency [Not Recovered/Not Resolved]
  - Mucosal inflammation [Recovered/Resolved]
  - Overdose [Not Recovered/Not Resolved]
  - Neutropenia [Recovered/Resolved]

NARRATIVE: CASE EVENT DATE: 20191213
